FAERS Safety Report 23762675 (Version 1)
Quarter: 2024Q2

REPORT INFORMATION
  Report Type: Spontaneous
  Country: US (occurrence: US)
  Receive Date: 20240419
  Receipt Date: 20240419
  Transmission Date: 20240716
  Serious: No
  Sender: FDA-Public Use
  Company Number: US-PHATHOM PHARMACEUTICALS INC.-2024PHT00060

PATIENT
  Age: 73 Year
  Sex: Female
  Weight: 83.9 kg

DRUGS (6)
  1. VOQUEZNA DUAL PAK [Suspect]
     Active Substance: AMOXICILLIN\VONOPRAZAN FUMARATE
     Indication: Gastrooesophageal reflux disease
     Dosage: 20 MG, 2X/DAY
     Route: 048
     Dates: start: 20240203
  2. VOQUEZNA DUAL PAK [Suspect]
     Active Substance: AMOXICILLIN\VONOPRAZAN FUMARATE
     Indication: Helicobacter infection
  3. VITAMIN B [Concomitant]
     Active Substance: VITAMIN B
  4. VITAMIN C [Concomitant]
     Active Substance: ASCORBIC ACID
  5. CALCIUM [Concomitant]
     Active Substance: CALCIUM
  6. VITAMIN D NOS [Concomitant]
     Active Substance: VITAMIN D NOS

REACTIONS (4)
  - Blood calcium decreased [Unknown]
  - Palpitations [Recovering/Resolving]
  - Muscle spasms [Recovering/Resolving]
  - Dizziness [Recovering/Resolving]

NARRATIVE: CASE EVENT DATE: 20240201
